FAERS Safety Report 17273844 (Version 1)
Quarter: 2020Q1

REPORT INFORMATION
  Report Type: Spontaneous
  Country: US (occurrence: US)
  Receive Date: 20200115
  Receipt Date: 20200115
  Transmission Date: 20200409
  Serious: Yes (Other)
  Sender: FDA-Public Use
  Company Number: NVSC2020US006671

PATIENT
  Age: 77 Year
  Sex: Female

DRUGS (3)
  1. VENETOCLAX. [Suspect]
     Active Substance: VENETOCLAX
     Indication: ACUTE MYELOID LEUKAEMIA
     Dosage: 100 MG
     Route: 048
  2. DECITABINE. [Suspect]
     Active Substance: DECITABINE
     Indication: ACUTE MYELOID LEUKAEMIA
     Dosage: 20 MG/M2, QD
     Route: 042
  3. VENETOCLAX. [Suspect]
     Active Substance: VENETOCLAX
     Dosage: 300 MG
     Route: 048

REACTIONS (7)
  - Clostridium difficile colitis [Unknown]
  - Product use in unapproved indication [Unknown]
  - Pleural effusion [Unknown]
  - Anaemia [Recovering/Resolving]
  - Thrombocytopenia [Recovered/Resolved]
  - Enterococcal infection [Unknown]
  - Urinary tract infection [Unknown]
